FAERS Safety Report 9549324 (Version 1)
Quarter: 2013Q3

REPORT INFORMATION
  Report Type: Spontaneous
  Country: BR (occurrence: BR)
  Receive Date: 20130924
  Receipt Date: 20130924
  Transmission Date: 20140515
  Serious: Yes (Hospitalization, Other)
  Sender: FDA-Public Use
  Company Number: BR-PFIZER INC-2013271143

PATIENT
  Age: 81 Year
  Sex: Female
  Weight: 62 kg

DRUGS (5)
  1. LIPITOR [Suspect]
     Dosage: 10 MG, 1X/DAY
     Route: 048
     Dates: start: 20051114
  2. CARVEDILOL [Concomitant]
     Dosage: 1 TABLET, 2X/DAY
  3. LASIX [Concomitant]
     Dosage: 0.5 DF, 1X/DAY
  4. MAREVAN [Concomitant]
     Indication: ANTICOAGULANT THERAPY
     Dosage: UNK
  5. SOMALGIN CARDIO [Concomitant]
     Dosage: UNK

REACTIONS (4)
  - Venous occlusion [Unknown]
  - Rectal cancer [Unknown]
  - Carotid artery occlusion [Unknown]
  - Eating disorder [Unknown]
